FAERS Safety Report 8167584-1 (Version None)
Quarter: 2012Q1

REPORT INFORMATION
  Report Type: 
  Country: None (occurrence: None)
  Receive Date: 20120227
  Receipt Date: 20120222
  Transmission Date: 20120608
  Serious: Yes (Hospitalization)
  Sender: FDA-Public Use
  Company Number: US-ROCHE-1042372

PATIENT
  Age: 45 Year
  Sex: Male

DRUGS (2)
  1. GANCICLOVIR [Suspect]
     Indication: LIVER TRANSPLANT
     Route: 042
  2. VALCYTE [Suspect]
     Indication: LIVER TRANSPLANT
     Route: 048

REACTIONS (2)
  - PLEURAL EFFUSION [None]
  - FISTULA [None]
